FAERS Safety Report 6319635-4 (Version None)
Quarter: 2009Q3

REPORT INFORMATION
  Report Type: 
  Country: None (occurrence: None)
  Receive Date: 20090822
  Receipt Date: 20081010
  Transmission Date: 20100115
  Serious: No
  Sender: FDA-Public Use
  Company Number: US-ABBOTT-08P-163-0479221-00

PATIENT
  Age: 50 Year
  Sex: Male

DRUGS (3)
  1. NIASPAN [Suspect]
     Indication: DRUG USE FOR UNKNOWN INDICATION
     Route: 048
     Dates: start: 20080701, end: 20080701
  2. NIASPAN [Suspect]
     Route: 048
     Dates: start: 20080801, end: 20080801
  3. NIASPAN [Suspect]
     Route: 048
     Dates: start: 20080901

REACTIONS (4)
  - FLUSHING [None]
  - INSOMNIA [None]
  - MIDDLE INSOMNIA [None]
  - PARAESTHESIA [None]
